FAERS Safety Report 7358935-6 (Version None)
Quarter: 2011Q1

REPORT INFORMATION
  Report Type: 
  Country: None (occurrence: None)
  Receive Date: 20110317
  Receipt Date: 20110310
  Transmission Date: 20110831
  Serious: No
  Sender: FDA-Public Use
  Company Number: US-PFIZER INC-2011053722

PATIENT
  Sex: Male
  Weight: 86.168 kg

DRUGS (3)
  1. ADVIL LIQUI-GELS [Suspect]
     Indication: PAIN
     Dosage: 400 MG, 2X/DAY
     Route: 048
     Dates: start: 20110309
  2. ADVIL LIQUI-GELS [Suspect]
     Indication: TOOTHACHE
  3. ATENOLOL [Concomitant]
     Indication: HEART RATE IRREGULAR
     Dosage: 50 MG, DAILY
     Route: 048

REACTIONS (1)
  - CONSTIPATION [None]
